FAERS Safety Report 24372927 (Version 2)
Quarter: 2024Q4

REPORT INFORMATION
  Report Type: Spontaneous
  Country: BR (occurrence: BR)
  Receive Date: 20240927
  Receipt Date: 20241008
  Transmission Date: 20250115
  Serious: Yes (Hospitalization, Other)
  Sender: GLAXOSMITHKLINE
  Company Number: BR-GLAXOSMITHKLINE-BR2024AMR118590

PATIENT

DRUGS (3)
  1. MEPOLIZUMAB [Suspect]
     Active Substance: MEPOLIZUMAB
     Indication: Eosinophilic granulomatosis with polyangiitis
     Dosage: UNK
     Dates: start: 2021
  2. AZATHIOPRINE [Concomitant]
     Active Substance: AZATHIOPRINE
     Indication: Product used for unknown indication
     Dosage: UNK
  3. PREDNISONE [Concomitant]
     Active Substance: PREDNISONE
     Indication: Product used for unknown indication
     Dosage: 10 MG, QD

REACTIONS (5)
  - Deep vein thrombosis [Unknown]
  - Pneumonia [Unknown]
  - Pulmonary embolism [Unknown]
  - Diaphragmatic paralysis [Unknown]
  - Herpes zoster [Unknown]

NARRATIVE: CASE EVENT DATE: 20240401
